FAERS Safety Report 5210479-3 (Version None)
Quarter: 2006Q4

REPORT INFORMATION
  Report Type: 
  Country: None (occurrence: None)
  Receive Date: 20061106
  Receipt Date: 20060414
  Transmission Date: 20070319
  Serious: Yes (Life-Threatening, Hospitalization)
  Sender: FDA-Public Use
  Company Number: US-JNJFOC-20051201458

PATIENT
  Age: 62 Year
  Sex: Male

DRUGS (14)
  1. MOTRIN [Suspect]
     Indication: DRUG USE FOR UNKNOWN INDICATION
     Dates: end: 20050801
  2. TEGRETOL [Suspect]
     Indication: DRUG USE FOR UNKNOWN INDICATION
     Dates: end: 20050801
  3. RADIATION THERAPY (OTHER DIAGNOSTIC AGENTS) [Concomitant]
  4. TEMODAR [Concomitant]
  5. NORVASC [Concomitant]
  6. CELEXA [Concomitant]
  7. ZOFRAN [Concomitant]
  8. VANCOMYCIN [Concomitant]
  9. ACYCLOVIR [Concomitant]
  10. ZOSYN [Concomitant]
  11. AMPICILLIN [Concomitant]
  12. KEPPRA [Concomitant]
  13. CARBATROL [Concomitant]
  14. NSAIDS [Suspect]
     Indication: DRUG USE FOR UNKNOWN INDICATION
     Dates: end: 20050801

REACTIONS (1)
  - NEPHRITIS [None]
